FAERS Safety Report 12449203 (Version 4)
Quarter: 2017Q3

REPORT INFORMATION
  Report Type: Report from Study
  Country: US (occurrence: US)
  Receive Date: 20160608
  Receipt Date: 20170919
  Transmission Date: 20171127
  Serious: Yes (Other)
  Sender: FDA-Public Use
  Company Number: US-ACTELION-A-NJ2016-137335

PATIENT
  Age: 50 Year
  Sex: Female
  Weight: 79.82 kg

DRUGS (3)
  1. VENTAVIS [Suspect]
     Active Substance: ILOPROST
     Indication: PULMONARY ARTERIAL HYPERTENSION
     Dosage: 5 MCG, 6-9X/DAY
     Route: 055
     Dates: start: 20060614
  2. OPSUMIT [Concomitant]
     Active Substance: MACITENTAN
     Indication: PULMONARY ARTERIAL HYPERTENSION
     Route: 048
  3. UPTRAVI [Concomitant]
     Active Substance: SELEXIPAG
     Indication: PULMONARY ARTERIAL HYPERTENSION
     Route: 048

REACTIONS (6)
  - Chills [Unknown]
  - Pain in jaw [Not Recovered/Not Resolved]
  - Dyspnoea exertional [Unknown]
  - Myalgia [Not Recovered/Not Resolved]
  - Breast cancer [Unknown]
  - Pyrexia [Unknown]

NARRATIVE: CASE EVENT DATE: 201605
